FAERS Safety Report 10255249 (Version 2)
Quarter: 2014Q2

REPORT INFORMATION
  Report Type: Spontaneous
  Country: JP (occurrence: JP)
  Receive Date: 20140624
  Receipt Date: 20140624
  Transmission Date: 20141212
  Serious: No
  Sender: FDA-Public Use
  Company Number: PHHY2014JP073715

PATIENT
  Age: 75 Year
  Sex: Male

DRUGS (9)
  1. TASIGNA [Suspect]
     Indication: CHRONIC MYELOID LEUKAEMIA
     Dosage: 300 MG, DAILY
     Route: 048
     Dates: start: 20130601
  2. SENNOSIDE [Concomitant]
     Dosage: 48 MG, UNK
     Route: 048
  3. THYRADIN S [Concomitant]
     Dosage: UNK UKN, UNK
     Dates: start: 20140325
  4. AMLODIPINE ODAN [Concomitant]
     Dosage: 5 MG, UNK
     Route: 048
  5. ZYLORIC [Concomitant]
     Dosage: 100 MG, UNK
     Route: 048
  6. ALLEGRA [Concomitant]
     Dosage: 120 MG, UNK
     Route: 048
  7. FAMOTIDINE [Concomitant]
     Dosage: 20 MG, UNK
     Route: 048
  8. FLUITRAN [Concomitant]
     Dosage: 1 MG, UNK
     Route: 048
     Dates: start: 2010
  9. OLMETEC [Concomitant]
     Dosage: 20 MG, UNK
     Route: 048
     Dates: start: 2010

REACTIONS (2)
  - Hypothyroidism [Not Recovered/Not Resolved]
  - Oedema [Unknown]
